FAERS Safety Report 9870091 (Version 1)
Quarter: 2014Q1

REPORT INFORMATION
  Report Type: Spontaneous
  Country: US (occurrence: IT)
  Receive Date: 20140205
  Receipt Date: 20140205
  Transmission Date: 20141002
  Serious: Yes (Other)
  Sender: FDA-Public Use
  Company Number: IT-FRI-1000053362

PATIENT
  Age: 23 Year
  Sex: Female

DRUGS (1)
  1. ASENAPINE [Suspect]
     Indication: BORDERLINE PERSONALITY DISORDER
     Route: 060
     Dates: start: 201101

REACTIONS (4)
  - Suicide attempt [Unknown]
  - Substance abuse [Unknown]
  - Off label use [Unknown]
  - Off label use [Unknown]
